FAERS Safety Report 6634454-7 (Version None)
Quarter: 2010Q1

REPORT INFORMATION
  Report Type: 
  Country: None (occurrence: None)
  Receive Date: 20100315
  Receipt Date: 20100305
  Transmission Date: 20100710
  Serious: Yes (Other)
  Sender: FDA-Public Use
  Company Number: US-PFIZER INC-2009266870

PATIENT
  Sex: Male
  Weight: 107 kg

DRUGS (3)
  1. LIPITOR [Suspect]
     Indication: BLOOD CHOLESTEROL INCREASED
     Dosage: DAILY
     Dates: end: 20090101
  2. LOPRESSOR [Concomitant]
     Indication: HYPERTENSION
     Dosage: 100 MG, UNK
  3. ACETYLSALICYLIC ACID [Concomitant]
     Dosage: 2

REACTIONS (6)
  - JOINT INJURY [None]
  - LIGAMENT PAIN [None]
  - MUSCLE ATROPHY [None]
  - MUSCLE SPASMS [None]
  - PAIN IN EXTREMITY [None]
  - TENDON PAIN [None]
